FAERS Safety Report 4402745-6 (Version None)
Quarter: 2004Q3

REPORT INFORMATION
  Report Type: 
  Country: None (occurrence: None)
  Receive Date: 20040721
  Receipt Date: 20040309
  Transmission Date: 20050211
  Serious: No
  Sender: FDA-Public Use
  Company Number: US-BRISTOL-MYERS SQUIBB COMPANY-12527487

PATIENT
  Sex: Female

DRUGS (2)
  1. ESTRACE [Suspect]
     Indication: HORMONE REPLACEMENT THERAPY
  2. PROMETRIUM [Suspect]

REACTIONS (2)
  - BREAST TENDERNESS [None]
  - SOMNOLENCE [None]
